FAERS Safety Report 8491419-0 (Version None)
Quarter: 2012Q3

REPORT INFORMATION
  Report Type: 
  Country: None (occurrence: None)
  Receive Date: 20120706
  Receipt Date: 20120627
  Transmission Date: 20120928
  Serious: Yes (Hospitalization)
  Sender: FDA-Public Use
  Company Number: JP-VERTEX PHARMACEUTICALS INC.-AE-2012-003622

PATIENT
  Age: 67 Year
  Sex: Female

DRUGS (20)
  1. TELAVIC (TELAPREVIR) [Suspect]
     Route: 048
     Dates: start: 20120131, end: 20120220
  2. RIBAVIRIN [Concomitant]
     Route: 048
     Dates: start: 20120405
  3. VOLTAREN [Concomitant]
     Route: 054
     Dates: start: 20120124
  4. MOTILIUM [Concomitant]
     Route: 048
  5. CLOBETASOL PROPIONATE [Concomitant]
     Route: 061
     Dates: start: 20120126
  6. PEGINTERFERON ALFA-2A [Concomitant]
     Indication: HEPATITIS C
     Route: 058
     Dates: start: 20120124, end: 20120224
  7. TELAVIC (TELAPREVIR) [Suspect]
     Route: 048
     Dates: start: 20120326, end: 20120404
  8. RIBAVIRIN [Concomitant]
     Indication: HEPATITIS C
     Route: 048
     Dates: start: 20120124, end: 20120207
  9. RIBAVIRIN [Concomitant]
     Route: 048
     Dates: start: 20120221, end: 20120301
  10. TOUGHMAC E [Concomitant]
     Route: 048
     Dates: start: 20120125
  11. MAGMITT [Concomitant]
     Route: 048
     Dates: start: 20120125
  12. TELAVIC (TELAPREVIR) [Suspect]
     Indication: HEPATITIS C
     Route: 048
     Dates: start: 20120124, end: 20120130
  13. RIBAVIRIN [Concomitant]
     Route: 048
     Dates: start: 20120326, end: 20120404
  14. TELAVIC (TELAPREVIR) [Suspect]
     Route: 048
     Dates: start: 20120221, end: 20120301
  15. RABEPRAZOLE SODIUM [Concomitant]
     Route: 048
     Dates: start: 20120210
  16. MOTILIUM [Concomitant]
     Route: 048
     Dates: start: 20120223, end: 20120327
  17. PEGINTERFERON ALFA-2A [Concomitant]
     Route: 058
     Dates: start: 20120326
  18. TELAVIC (TELAPREVIR) [Suspect]
     Route: 048
     Dates: start: 20120405
  19. RIBAVIRIN [Concomitant]
     Route: 048
     Dates: start: 20120208, end: 20120220
  20. ALLEGRA [Concomitant]
     Route: 048
     Dates: start: 20120126

REACTIONS (2)
  - DECREASED APPETITE [None]
  - ANAEMIA [None]
